FAERS Safety Report 8408723-4 (Version None)
Quarter: 2012Q2

REPORT INFORMATION
  Report Type: 
  Country: None (occurrence: None)
  Receive Date: 20120604
  Receipt Date: 20120525
  Transmission Date: 20120825
  Serious: Yes (Hospitalization, Other)
  Sender: FDA-Public Use
  Company Number: US-ABBOTT-12P-163-0925866-00

PATIENT
  Sex: Female
  Weight: 50.848 kg

DRUGS (3)
  1. LEVOTHYROXINE SODIUM [Concomitant]
     Indication: THYROID DISORDER
  2. CREON [Suspect]
     Dates: start: 20120301
  3. CREON [Suspect]
     Indication: PANCREATIC INSUFFICIENCY

REACTIONS (5)
  - PANCREATITIS ACUTE [None]
  - AMYLASE INCREASED [None]
  - DIARRHOEA [None]
  - ABDOMINAL PAIN UPPER [None]
  - EXPIRED DRUG ADMINISTERED [None]
